FAERS Safety Report 23185263 (Version 2)
Quarter: 2024Q3

REPORT INFORMATION
  Report Type: Report from Study
  Country: GB (occurrence: GB)
  Receive Date: 20231115
  Receipt Date: 20240909
  Transmission Date: 20241017
  Serious: Yes (Hospitalization, Other)
  Sender: ALEXION PHARMACEUTICALS
  Company Number: GB-ALXN-A202306270

PATIENT
  Age: 1 Year
  Sex: Female

DRUGS (84)
  1. KANUMA [Suspect]
     Active Substance: SEBELIPASE ALFA
     Indication: Lysosomal acid lipase deficiency
     Dosage: 3 MG/KG, QW
     Route: 058
     Dates: start: 20160811, end: 201708
  2. KANUMA [Suspect]
     Active Substance: SEBELIPASE ALFA
     Dosage: UNK, QW
     Route: 058
     Dates: start: 201708
  3. KANUMA [Suspect]
     Active Substance: SEBELIPASE ALFA
     Dosage: 12 MG, SINGLE
     Route: 042
  4. KANUMA [Suspect]
     Active Substance: SEBELIPASE ALFA
     Dosage: 15 MG, QW
     Route: 042
  5. KANUMA [Suspect]
     Active Substance: SEBELIPASE ALFA
     Dosage: 12 MG, QW
     Route: 042
  6. KANUMA [Suspect]
     Active Substance: SEBELIPASE ALFA
     Dosage: UNK, QW
     Route: 058
     Dates: start: 20190927, end: 20210222
  7. KANUMA [Suspect]
     Active Substance: SEBELIPASE ALFA
     Dosage: UNK, QW
     Route: 058
     Dates: start: 20210518, end: 20210614
  8. KANUMA [Suspect]
     Active Substance: SEBELIPASE ALFA
     Dosage: UNK, QW
     Route: 058
     Dates: start: 20210615, end: 20221114
  9. KANUMA [Suspect]
     Active Substance: SEBELIPASE ALFA
     Dosage: UNK, QW
     Route: 058
     Dates: start: 20221115
  10. CALPOL [Concomitant]
     Active Substance: ACETAMINOPHEN
     Indication: Upper respiratory tract infection
     Dosage: UNK
     Route: 048
  11. CALPOL [Concomitant]
     Active Substance: ACETAMINOPHEN
     Indication: Respiratory syncytial virus infection
  12. CIPROFLOXACIN [Concomitant]
     Active Substance: CIPROFLOXACIN
     Indication: Bacterial infection
     Dosage: 170 MG, Q12H
     Route: 048
  13. CHOLECALCIFEROL [Concomitant]
     Active Substance: CHOLECALCIFEROL
     Indication: Product used for unknown indication
     Dosage: 0.6 ML, QD
     Route: 048
  14. DIORALYTE                          /00386201/ [Concomitant]
     Indication: Fluid replacement
     Dosage: 1 SACHET, PRN
     Route: 050
  15. HYDROCORTISONE [Concomitant]
     Active Substance: HYDROCORTISONE\HYDROCORTISONE ACETATE
     Indication: Premedication
     Dosage: 50 MG, QW
     Route: 042
  16. HYDROCORTISONE [Concomitant]
     Active Substance: HYDROCORTISONE\HYDROCORTISONE ACETATE
     Dosage: 25 MG, PRN
     Route: 042
  17. IBUPROFEN [Concomitant]
     Active Substance: IBUPROFEN
     Indication: Antipyresis
     Dosage: 45 MG, 6-8 HR
     Route: 048
  18. MEROPENEM [Concomitant]
     Active Substance: MEROPENEM
     Indication: Upper respiratory tract infection
     Route: 042
  19. MEROPENEM [Concomitant]
     Active Substance: MEROPENEM
     Indication: Respiratory syncytial virus infection
     Dosage: UNK
     Route: 042
  20. MEROPENEM [Concomitant]
     Active Substance: MEROPENEM
     Indication: Vascular device infection
  21. MEROPENEM [Concomitant]
     Active Substance: MEROPENEM
     Indication: Upper respiratory tract infection
  22. MEROPENEM [Concomitant]
     Active Substance: MEROPENEM
     Indication: Pneumonia
  23. PREDNISOLONE [Concomitant]
     Active Substance: PREDNISOLONE
     Indication: Steroid therapy
     Dosage: 10 MG, QW
     Route: 050
  24. PREDNISOLONE [Concomitant]
     Active Substance: PREDNISOLONE
     Dosage: 10 MG, QHS
     Route: 050
  25. PROPRANOLOL [Concomitant]
     Active Substance: PROPRANOLOL HYDROCHLORIDE
     Indication: Portal hypertension
     Dosage: 11 MG, TID
     Route: 048
  26. PROPRANOLOL [Concomitant]
     Active Substance: PROPRANOLOL HYDROCHLORIDE
     Indication: Hepatic cirrhosis
     Dosage: 13 MG, TID
     Route: 048
  27. PROPRANOLOL [Concomitant]
     Active Substance: PROPRANOLOL HYDROCHLORIDE
     Indication: Varices oesophageal
     Dosage: 15 MG, TID
     Route: 048
  28. SALINE                             /00075401/ [Concomitant]
     Indication: Nasal irrigation
     Dosage: 1 DROP, PRN
     Route: 050
  29. SYTRON [Concomitant]
     Indication: Product used for unknown indication
     Dosage: 2.5 MG, TID
     Route: 050
  30. SYTRON [Concomitant]
     Route: 050
  31. TAMIFLU [Concomitant]
     Active Substance: OSELTAMIVIR PHOSPHATE
     Indication: Influenza
     Dosage: UNK
     Route: 050
  32. TAMIFLU [Concomitant]
     Active Substance: OSELTAMIVIR PHOSPHATE
     Indication: Pyrexia
  33. PIPERACILLIN SODIUM\TAZOBACTAM SODIUM [Concomitant]
     Active Substance: PIPERACILLIN SODIUM\TAZOBACTAM SODIUM
     Indication: Antibiotic therapy
     Dosage: 520 MG, SINGLE
     Route: 042
  34. TEICOPLANIN [Concomitant]
     Active Substance: TEICOPLANIN
     Indication: Antibiotic therapy
     Dosage: 86 MG, Q12H
     Route: 042
  35. TEICOPLANIN [Concomitant]
     Active Substance: TEICOPLANIN
     Indication: Conjunctivitis
     Dosage: 85 MG, Q12H
     Route: 042
  36. TEICOPLANIN [Concomitant]
     Active Substance: TEICOPLANIN
     Indication: Pyrexia
     Dosage: 51 MG, QD
     Route: 042
  37. TEICOPLANIN [Concomitant]
     Active Substance: TEICOPLANIN
     Dosage: 50 MG, QD
     Route: 042
  38. TEICOPLANIN [Concomitant]
     Active Substance: TEICOPLANIN
     Dosage: 80 MG, Q12H
     Route: 042
  39. TRANEXAMIC ACID [Concomitant]
     Active Substance: TRANEXAMIC ACID
     Indication: Gastrostomy
     Dosage: UNK
     Route: 065
  40. TOCOPHEROL [Concomitant]
     Active Substance: TOCOPHEROL
     Indication: Vitamin supplementation
     Dosage: 40 MG, QD
     Route: 050
  41. TOCOPHEROL [Concomitant]
     Active Substance: TOCOPHEROL
     Indication: Antioxidant therapy
     Dosage: 500 MG, QD
     Route: 050
  42. TOCOPHEROL [Concomitant]
     Active Substance: TOCOPHEROL
     Dosage: 50 MG, BID
     Route: 050
  43. TOCOPHEROL [Concomitant]
     Active Substance: TOCOPHEROL
     Dosage: 50 MG, QD
     Route: 050
  44. VITAMIN K [Concomitant]
     Active Substance: PHYTONADIONE
     Indication: Anticoagulant therapy
     Dosage: 1 MG, QD
     Route: 048
  45. VITAMIN K [Concomitant]
     Active Substance: PHYTONADIONE
     Indication: Upper gastrointestinal haemorrhage
  46. VITAMIN K [Concomitant]
     Active Substance: PHYTONADIONE
     Indication: Upper gastrointestinal haemorrhage
     Dosage: 1 MG, UNK
     Route: 050
  47. TOCOPHEROL [Concomitant]
     Active Substance: TOCOPHEROL
     Indication: Vitamin supplementation
     Dosage: 50 MG, QD
     Route: 048
  48. POTASSIUM [Concomitant]
     Active Substance: POTASSIUM
     Indication: Upper gastrointestinal haemorrhage
     Dosage: 2 MMOL, TID
     Route: 050
  49. OMEPRAZOLE [Concomitant]
     Active Substance: OMEPRAZOLE
     Indication: Upper gastrointestinal haemorrhage
     Dosage: 10 MG, QD
     Route: 050
  50. MENADIOL [Concomitant]
     Active Substance: MENADIOL
     Indication: Upper gastrointestinal haemorrhage
     Dosage: 10 MG, QD
     Route: 050
  51. HEPARIN [Concomitant]
     Active Substance: HEPARIN SODIUM
     Indication: Flushing
     Dosage: 5 ML, PRN
     Route: 050
  52. RANITIDINE [Concomitant]
     Active Substance: RANITIDINE
     Indication: Upper gastrointestinal haemorrhage
     Dosage: 36 MG, BID
     Route: 048
  53. RANITIDINE [Concomitant]
     Active Substance: RANITIDINE
     Dosage: 15 MG, BID
     Route: 048
  54. RANITIDINE [Concomitant]
     Active Substance: RANITIDINE
     Indication: Upper gastrointestinal haemorrhage
     Dosage: 16 MG, UNK
     Route: 042
  55. RANITIDINE [Concomitant]
     Active Substance: RANITIDINE
     Dosage: 8 UNK, UNK
     Route: 042
  56. SODIUM BICARBONATE [Concomitant]
     Active Substance: SODIUM BICARBONATE
     Indication: Hypernatraemia
     Dosage: 4.5 MMOL, BID
     Route: 048
  57. SODIUM BICARBONATE [Concomitant]
     Active Substance: SODIUM BICARBONATE
     Indication: Product used for unknown indication
     Dosage: 0.5 MMOL, TID
     Route: 050
  58. CHLORPHENIRAMINE MALEATE [Concomitant]
     Active Substance: CHLORPHENIRAMINE MALEATE
     Indication: Antiallergic therapy
     Dosage: 1 MG, PRN
     Route: 042
  59. CHLORPHENIRAMINE MALEATE [Concomitant]
     Active Substance: CHLORPHENIRAMINE MALEATE
     Dosage: 1 MG, QID
     Route: 042
  60. CHLORPHENIRAMINE MALEATE [Concomitant]
     Active Substance: CHLORPHENIRAMINE MALEATE
     Indication: Antiallergic therapy
     Dosage: 1 MG, QD
     Route: 048
  61. CEFTRIAXONE [Concomitant]
     Active Substance: CEFTRIAXONE\CEFTRIAXONE SODIUM
     Indication: Product used for unknown indication
     Dosage: 420 MG, QD
     Route: 042
  62. DALIVIT [Concomitant]
     Indication: Vitamin supplementation
     Dosage: 0.6 ML, QD (MORNING)
     Route: 048
  63. ADEK [Concomitant]
     Indication: Vitamin A deficiency
     Dosage: 1 MILLILITER, QD
     Route: 048
  64. ADEK [Concomitant]
     Indication: Vitamin D deficiency
  65. ADEK [Concomitant]
     Indication: Vitamin E deficiency
  66. ADEK [Concomitant]
     Indication: Vitamin K deficiency
  67. AUGMENTIN [Concomitant]
     Active Substance: AMOXICILLIN\CLAVULANATE POTASSIUM
     Indication: Sepsis
     Dosage: UNK
     Route: 042
  68. Calciless [Concomitant]
     Indication: Electrolyte imbalance
     Dosage: 100 MILLIGRAM, BID
     Route: 048
  69. CALCIUM CARBONATE [Concomitant]
     Active Substance: CALCIUM CARBONATE
     Indication: Electrolyte imbalance
     Dosage: 300 MILLIGRAM, BID
     Route: 048
  70. CALCIUM LACTATE GLUCONATE [Concomitant]
     Active Substance: CALCIUM LACTATE GLUCONATE
     Indication: Electrolyte imbalance
     Dosage: 300 MILLIGRAM, BID
     Route: 048
  71. CEFUROXIME [Concomitant]
     Active Substance: CEFUROXIME
     Indication: Urinary tract infection
     Dosage: 200 MILLIGRAM, BID
     Route: 048
  72. LEVOTHYROXINE [Concomitant]
     Active Substance: LEVOTHYROXINE\LEVOTHYROXINE SODIUM
     Indication: Hypothyroidism
     Dosage: 50 MICROGRAM, QD
     Route: 048
  73. LEVOTHYROXINE [Concomitant]
     Active Substance: LEVOTHYROXINE\LEVOTHYROXINE SODIUM
     Dosage: 25 MICROGRAM, QD
     Route: 048
  74. LEVOTHYROXINE [Concomitant]
     Active Substance: LEVOTHYROXINE\LEVOTHYROXINE SODIUM
     Dosage: 35 MICROGRAM, QD
     Route: 048
  75. ERTAPENEM [Concomitant]
     Active Substance: ERTAPENEM
     Indication: Bacteraemia
     Dosage: 180 MILLIGRAM, BID
     Route: 042
  76. FLAGYL [Concomitant]
     Active Substance: METRONIDAZOLE\METRONIDAZOLE HYDROCHLORIDE
     Indication: Gastroenteritis
     Dosage: 120 MILLIGRAM, TID
     Route: 048
  77. FLAGYL [Concomitant]
     Active Substance: METRONIDAZOLE\METRONIDAZOLE HYDROCHLORIDE
     Indication: Rotavirus infection
  78. FERRIPEL [Concomitant]
     Indication: Anaemia
     Dosage: 42.5 MILLIGRAM, QD
     Route: 048
  79. SOPA K [Concomitant]
     Indication: Hypokalaemia
     Dosage: 25 MILLIEQUIVALENT, QD
     Route: 048
  80. VANCOMYCIN [Concomitant]
     Active Substance: VANCOMYCIN
     Indication: Bacteraemia
     Dosage: 150 MILLIGRAM, TID
     Route: 042
  81. VITAMIN D3 [Concomitant]
     Active Substance: CHOLECALCIFEROL
     Indication: Vitamin D deficiency
     Dosage: 2000 INTERNATIONAL UNIT, QID
     Route: 048
  82. VITAMIN D3 [Concomitant]
     Active Substance: CHOLECALCIFEROL
     Indication: Gastrointestinal haemorrhage
     Dosage: 600 INTERNATIONAL UNIT, QID
     Route: 048
  83. Metanium [Concomitant]
     Indication: Dermatitis diaper
     Dosage: UNK, PRN
     Route: 065
  84. OCTREOTIDE MAYNE [Concomitant]
     Indication: Gastrointestinal haemorrhage
     Dosage: UNK
     Route: 042

REACTIONS (8)
  - Pulmonary embolism [Recovered/Resolved]
  - Hypernatraemia [Recovered/Resolved]
  - Viral infection [Recovered/Resolved]
  - Vomiting [Recovered/Resolved]
  - Pyrexia [Recovered/Resolved]
  - Diarrhoea [Recovered/Resolved]
  - Cough [Recovered/Resolved]
  - Neutropenia [Recovered/Resolved]

NARRATIVE: CASE EVENT DATE: 20180112
